FAERS Safety Report 26165936 (Version 1)
Quarter: 2025Q4

REPORT INFORMATION
  Report Type: Spontaneous
  Country: US (occurrence: US)
  Receive Date: 20251216
  Receipt Date: 20251216
  Transmission Date: 20260118
  Serious: Yes (Hospitalization)
  Sender: FRESENIUS MEDICAL CARE
  Company Number: US-FMCRTG-FMC-2512-001964

PATIENT
  Age: 55 Year
  Sex: Female
  Weight: 142 kg

DRUGS (23)
  1. DELFLEX [Suspect]
     Active Substance: CALCIUM CHLORIDE\DEXTROSE\MAGNESIUM CHLORIDE\SODIUM CHLORIDE\SODIUM LACTATE
     Indication: End stage renal disease
     Dosage: 7 DAYS-A-WEEK, EXCHANGES = 4, EXCHANGE VOLUME = 2400 ML, AVERAGE DWELL TIME = 2.0 HOURS, LAST FILL =
     Route: 033
  2. APIXABAN [Concomitant]
     Active Substance: APIXABAN
  3. MIDODRINE [Concomitant]
     Active Substance: MIDODRINE
  4. RAMELTEON JG [Concomitant]
  5. TIZANIDINE [Concomitant]
     Active Substance: TIZANIDINE
  6. TORSEMIDE [Concomitant]
     Active Substance: TORSEMIDE
  7. ACETAMINOPHEN [Concomitant]
     Active Substance: ACETAMINOPHEN
  8. ALBUTEROL [Concomitant]
     Active Substance: ALBUTEROL
  9. BIFIDOBACTERIUM LONGUM [Concomitant]
     Active Substance: BIFIDOBACTERIUM LONGUM
  10. CARVEDILOL [Concomitant]
     Active Substance: CARVEDILOL
  11. FAMOTIDINE [Concomitant]
     Active Substance: FAMOTIDINE
  12. GENTAMICIN [Concomitant]
     Active Substance: GENTAMICIN
  13. INSULIN ASPART [Concomitant]
     Active Substance: INSULIN ASPART
  14. INSULIN GLARGINE [Concomitant]
     Active Substance: INSULIN GLARGINE
  15. LANTHANUM CARBONATE [Concomitant]
     Active Substance: LANTHANUM CARBONATE
  16. MONTELUKAST [Concomitant]
     Active Substance: MONTELUKAST
  17. PANTOPRAZOLE [Concomitant]
     Active Substance: PANTOPRAZOLE
  18. ROSUVASTATIN [Concomitant]
     Active Substance: ROSUVASTATIN
  19. SEVELAMER [Concomitant]
     Active Substance: SEVELAMER
  20. TIRZEPATIDE [Concomitant]
     Active Substance: TIRZEPATIDE
  21. FLUCONAZOLE [Concomitant]
     Active Substance: FLUCONAZOLE
  22. HEPARIN [Concomitant]
     Active Substance: HEPARIN SODIUM
  23. PRAVASTATIN [Concomitant]
     Active Substance: PRAVASTATIN

REACTIONS (4)
  - Pulmonary embolism [Recovered/Resolved]
  - Pancreatitis [Recovered/Resolved]
  - Colitis [Recovered/Resolved]
  - Peritonitis [Recovered/Resolved]

NARRATIVE: CASE EVENT DATE: 20251126
